FAERS Safety Report 8774464 (Version 2)
Quarter: 2012Q4

REPORT INFORMATION
  Report Type: Report from Study
  Country: JP (occurrence: JP)
  Receive Date: 20120907
  Receipt Date: 20121025
  Transmission Date: 20130627
  Serious: Yes (Other)
  Sender: FDA-Public Use
  Company Number: JP-VERTEX PHARMACEUTICAL INC.-AE-2012-009724

PATIENT
  Age: 48 Year
  Sex: Male

DRUGS (11)
  1. VX-950 [Suspect]
     Indication: HEPATITIS C
     Dosage: 2250 mg, qd
     Route: 048
     Dates: start: 20120326, end: 20120618
  2. RIBAVIRIN [Suspect]
     Indication: HEPATITIS C
     Dosage: 800 mg, qd
     Route: 048
     Dates: start: 20120326, end: 20120408
  3. RIBAVIRIN [Suspect]
     Dosage: 400 mg, qd
     Route: 048
     Dates: start: 20120409, end: 20120423
  4. RIBAVIRIN [Suspect]
     Dosage: 200 mg, qd
     Route: 048
     Dates: start: 20120424, end: 20120527
  5. PEGINTERFERON ALFA-2B [Suspect]
     Indication: HEPATITIS C
     Dosage: 1.5 ?g/kg, UNK
     Route: 058
     Dates: start: 20120326, end: 20120603
  6. PEGINTERFERON ALFA-2B [Suspect]
     Dosage: 1 ?g/kg, UNK
     Route: 058
     Dates: start: 20120604
  7. PRIMPERAN [Concomitant]
     Dosage: UNK, prn
     Route: 048
     Dates: start: 20120402
  8. SALOBEL [Concomitant]
     Dosage: 200 mg, qd
     Route: 048
     Dates: start: 20120402
  9. DERMOVATE [Concomitant]
     Dosage: UNK, qd
     Route: 061
     Dates: start: 20120423
  10. TAKEPRON [Concomitant]
     Dosage: 15 mg, qd
     Route: 048
     Dates: start: 20120521
  11. PURSENNID /00142207/ [Concomitant]
     Dosage: UNK UNK, prn
     Route: 048
     Dates: start: 20120327

REACTIONS (1)
  - Retinopathy [Recovered/Resolved]
